FAERS Safety Report 19944148 (Version 2)
Quarter: 2021Q4

REPORT INFORMATION
  Report Type: Spontaneous
  Country: ES (occurrence: ES)
  Receive Date: 20211011
  Receipt Date: 20211018
  Transmission Date: 20220304
  Serious: Yes (Other)
  Sender: FDA-Public Use
  Company Number: ES-TAKEDA-2021TUS061442

PATIENT
  Age: 8 Year
  Sex: Male

DRUGS (3)
  1. LISDEXAMFETAMINE DIMESYLATE [Suspect]
     Active Substance: LISDEXAMFETAMINE DIMESYLATE
     Indication: Product used for unknown indication
     Dosage: 30 MILLIGRAM
     Route: 065
  2. INTUNIV [Suspect]
     Active Substance: GUANFACINE HYDROCHLORIDE
     Indication: Product used for unknown indication
     Route: 065
     Dates: start: 20211002
  3. RISPERDAL [Concomitant]
     Active Substance: RISPERIDONE
     Route: 065

REACTIONS (8)
  - Choking [Unknown]
  - Motor dysfunction [Unknown]
  - Blood cholesterol increased [Unknown]
  - Abnormal behaviour [Unknown]
  - Psychomotor hyperactivity [Unknown]
  - Decreased appetite [Unknown]
  - Constipation [Unknown]
  - Drug ineffective [Unknown]
